FAERS Safety Report 17115562 (Version 1)
Quarter: 2019Q4

REPORT INFORMATION
  Report Type: Spontaneous
  Country: JP (occurrence: JP)
  Receive Date: 20191205
  Receipt Date: 20191205
  Transmission Date: 20200122
  Serious: Yes (Other)
  Sender: FDA-Public Use
  Company Number: JP-UCBSA-2019051829

PATIENT
  Age: 40 Year
  Sex: Male
  Weight: 79 kg

DRUGS (2)
  1. TEGRETOL [Suspect]
     Active Substance: CARBAMAZEPINE
     Indication: EPILEPSY
     Dosage: 1200 MG DAILY
     Route: 048
     Dates: start: 20090106
  2. E KEPPRA [Suspect]
     Active Substance: LEVETIRACETAM
     Indication: EPILEPSY
     Dosage: 3000 MG DAILY
     Route: 048
     Dates: start: 20110221

REACTIONS (8)
  - Depression [Not Recovered/Not Resolved]
  - Agitation [Recovered/Resolved with Sequelae]
  - Impulsive behaviour [Recovered/Resolved with Sequelae]
  - Confusional state [Recovered/Resolved with Sequelae]
  - Epileptic psychosis [Unknown]
  - Psychomotor retardation [Not Recovered/Not Resolved]
  - Stupor [Not Recovered/Not Resolved]
  - Irritability [Recovered/Resolved with Sequelae]

NARRATIVE: CASE EVENT DATE: 201607
